FAERS Safety Report 13229060 (Version 1)
Quarter: 2017Q1

REPORT INFORMATION
  Report Type: Spontaneous
  Country: IN (occurrence: IN)
  Receive Date: 20170214
  Receipt Date: 20170214
  Transmission Date: 20170428
  Serious: Yes (Life-Threatening, Hospitalization)
  Sender: FDA-Public Use
  Company Number: IN-ENDO PHARMACEUTICALS INC-2017-000664

PATIENT
  Age: 15 Month
  Sex: Male
  Weight: 11 kg

DRUGS (1)
  1. GLIPIZIDE TABLETS 5MG [Suspect]
     Active Substance: GLIPIZIDE
     Indication: PRODUCT USED FOR UNKNOWN INDICATION
     Dosage: 0.5 DF, UNKNOWN
     Route: 048

REACTIONS (11)
  - Unresponsive to stimuli [Recovered/Resolved]
  - Irritability [Recovered/Resolved]
  - Hypertonia [Recovered/Resolved]
  - Accidental exposure to product [Unknown]
  - Encephalopathy [Recovered/Resolved]
  - Coma [Recovered/Resolved]
  - Generalised tonic-clonic seizure [Recovered/Resolved]
  - Hyperreflexia [Recovered/Resolved]
  - Lethargy [Recovered/Resolved]
  - Toxicity to various agents [Recovered/Resolved]
  - Hypoglycaemia [Recovered/Resolved]
